FAERS Safety Report 5359375-1 (Version None)
Quarter: 2007Q2

REPORT INFORMATION
  Report Type: 
  Country: None (occurrence: None)
  Receive Date: 20070615
  Receipt Date: 20070611
  Transmission Date: 20071010
  Serious: Yes (Life-Threatening, Hospitalization, Other)
  Sender: FDA-Public Use
  Company Number: FR-ABBOTT-06P-056-0349811-01

PATIENT
  Sex: Male
  Weight: 84 kg

DRUGS (12)
  1. HUMIRA [Suspect]
     Indication: RHEUMATOID ARTHRITIS
     Route: 058
     Dates: start: 20040401, end: 20061026
  2. COMMERCIAL HUMIRA [Concomitant]
     Indication: RHEUMATOID ARTHRITIS
     Route: 058
     Dates: start: 20031022
  3. FLECAINIDE ACETATE [Concomitant]
     Indication: HYPERTENSION
  4. BISOPROLOL FUMARATE [Concomitant]
     Indication: HYPERTENSION
  5. VENLAFAXINE HCL [Concomitant]
     Indication: DEPRESSION
  6. LEVOTHYROXINE SODIUM [Concomitant]
     Indication: HYPOTHYROIDISM
  7. PROPRANOLOL [Concomitant]
     Indication: PROPHYLAXIS AGAINST GASTROINTESTINAL ULCER
  8. POTASSIUM CHLORIDE [Concomitant]
     Indication: HYPERTENSION
  9. ZOLPIDEM [Concomitant]
     Indication: DEPRESSION
  10. ACTIUCENAN [Concomitant]
     Indication: MALAISE
  11. LAMALINE [Concomitant]
     Indication: MALAISE
  12. HEPARIN-FRACTION, SODIUM SALT [Concomitant]
     Indication: PROPHYLAXIS

REACTIONS (1)
  - PLASMACYTOMA [None]
